FAERS Safety Report 10012147 (Version 1)
Quarter: 2014Q1

REPORT INFORMATION
  Report Type: Spontaneous
  Country: US (occurrence: US)
  Receive Date: 20140314
  Receipt Date: 20140314
  Transmission Date: 20141002
  Serious: Yes (Death)
  Sender: FDA-Public Use
  Company Number: US-GLAXOSMITHKLINE-A1064766A

PATIENT
  Age: 45 Year
  Sex: Male

DRUGS (1)
  1. VOTRIENT [Suspect]
     Indication: PROSTATE CANCER
     Dosage: 200MG PER DAY
     Route: 048
     Dates: start: 20130814

REACTIONS (1)
  - Disease progression [Fatal]
